FAERS Safety Report 7808739-2 (Version None)
Quarter: 2011Q4

REPORT INFORMATION
  Report Type: 
  Country: None (occurrence: None)
  Receive Date: 20111007
  Receipt Date: 20110928
  Transmission Date: 20120403
  Serious: Yes (Other)
  Sender: FDA-Public Use
  Company Number: GB-ACCORD-010650

PATIENT
  Age: 76 Year
  Sex: Female
  Weight: 67 kg

DRUGS (17)
  1. CETOSTEARYL ALCOHOL (CETOSTEARYL ALCOHOL) [Concomitant]
  2. MEPTAZINOL (MEPTAZINOL) [Concomitant]
  3. CALCICHEW D3 (CALCICHEW D3) [Concomitant]
  4. CLOPIDOGREL [Concomitant]
  5. DOCUSATE SODIUM (DOCUSATE SODIUM) [Concomitant]
  6. HYDROXOCOBALAMIN [Concomitant]
  7. GABAPENTIN [Concomitant]
  8. TRIMETHOPRIM [Concomitant]
  9. ZOPICLONE (ZOPICLONE) [Concomitant]
  10. SIMVASTATIN [Suspect]
     Indication: PRODUCT USED FOR UNKNOWN INDICATION
     Dates: start: 20110901
  11. BECLOMETHASONE DIPROPIONATE [Concomitant]
  12. HYPROMELLOSE (HYPROMELLOSE) [Concomitant]
  13. LOFEPRAMINE (LOFEPRAMINE) [Concomitant]
  14. OMEPRAZOLE [Concomitant]
  15. ACETAMINOPHEN [Concomitant]
  16. RAMIPRIL [Concomitant]
  17. SLOZEM (SLOZEM) [Concomitant]

REACTIONS (1)
  - CONTUSION [None]
